FAERS Safety Report 8799257 (Version 1)
Quarter: 2012Q4

REPORT INFORMATION
  Report Type: Spontaneous
  Country: BR (occurrence: None)
  Receive Date: 20120914
  Receipt Date: 20120914
  Transmission Date: 20130627
  Serious: Yes (Hospitalization)
  Sender: FDA-Public Use
  Company Number: ENTC2012-0405

PATIENT
  Age: 53 Year
  Sex: Male

DRUGS (3)
  1. STALEVO (LEVODOPA, CARBIDOPA, ENTACAPONE) [Suspect]
  2. STALEVO (LEVODOPA, CARBIDOPA, ENTACAPONE) [Suspect]
  3. STALEVO (LEVODOPA, CARBIDOPA, ENTACAPONE) [Suspect]

REACTIONS (1)
  - Hyperthermia [None]
